FAERS Safety Report 8375213-7 (Version None)
Quarter: 2012Q2

REPORT INFORMATION
  Report Type: 
  Country: None (occurrence: None)
  Receive Date: 20120522
  Receipt Date: 20120518
  Transmission Date: 20120825
  Serious: Yes (Hospitalization, Other)
  Sender: FDA-Public Use
  Company Number: US-AMGEN-USASP2012027343

PATIENT
  Age: 65 Year
  Sex: Female
  Weight: 71.655 kg

DRUGS (1)
  1. PROLIA [Suspect]
     Indication: OSTEOPOROSIS POSTMENOPAUSAL
     Dosage: 60 MG, Q6MO
     Dates: start: 20110401, end: 20120401

REACTIONS (4)
  - HYPOAESTHESIA [None]
  - HYPOCALCAEMIA [None]
  - ASTHENIA [None]
  - LETHARGY [None]
